FAERS Safety Report 4975806-0 (Version None)
Quarter: 2006Q2

REPORT INFORMATION
  Report Type: 
  Country: None (occurrence: None)
  Receive Date: 20060411
  Receipt Date: 20060323
  Transmission Date: 20061013
  Serious: Yes (Hospitalization)
  Sender: FDA-Public Use
  Company Number: EWC051046816

PATIENT
  Age: 83 Year
  Sex: Female
  Weight: 65 kg

DRUGS (13)
  1. TERIPARATIDE (TERIPARATIDE) PEN, DISPOSABLE [Suspect]
     Indication: OSTEOPOROSIS
     Dosage: 20 UG, DAILY (1/D), SUBCUTANEOUS
     Route: 058
     Dates: start: 20050929
  2. CIPROFLOXACIN [Concomitant]
  3. PREDNISOLON (PREDNISOLON) [Concomitant]
  4. LANOXIN [Concomitant]
  5. VERPAMIL (VERAPAMIL) [Concomitant]
  6. SEREVENT [Concomitant]
  7. FUROSEMIDE [Concomitant]
  8. BRICANYL [Concomitant]
  9. ISOSORBIDE MONONITRATE [Concomitant]
  10. IPRATROPIUM BROMIDE [Concomitant]
  11. BECLOMETHASONE DIPROPIONATE [Concomitant]
  12. ACENOCOUMAROL (ACENOCOUMAROL) [Concomitant]
  13. FORTEO PEN,250MCG/ML (3ML) (FORTEO PEN 250 MCG/ML (3ML)) PEN, DISPOSAB [Concomitant]

REACTIONS (9)
  - ARRHYTHMIA [None]
  - ATRIAL FIBRILLATION [None]
  - ATRIAL TACHYCARDIA [None]
  - ATRIOVENTRICULAR BLOCK FIRST DEGREE [None]
  - CHRONIC OBSTRUCTIVE PULMONARY DISEASE [None]
  - DYSPNOEA [None]
  - HYPOKALAEMIA [None]
  - VENTRICULAR EXTRASYSTOLES [None]
  - VENTRICULAR TACHYCARDIA [None]
